FAERS Safety Report 18811078 (Version 1)
Quarter: 2021Q1

REPORT INFORMATION
  Report Type: Report from Study
  Country: US (occurrence: US)
  Receive Date: 20210129
  Receipt Date: 20210129
  Transmission Date: 20210419
  Serious: Yes (Hospitalization)
  Sender: FDA-Public Use
  Company Number: US-GILEAD-2021-0513892

PATIENT
  Age: 33 Year
  Sex: Female

DRUGS (2)
  1. KALYDECO [Concomitant]
     Active Substance: IVACAFTOR
  2. AZTREONAM LYSINE [Suspect]
     Active Substance: AZTREONAM LYSINE
     Indication: CYSTIC FIBROSIS LUNG
     Dosage: 1 ML, TID FOR 28 DAYS, EVERY OTHER MONTH
     Route: 055

REACTIONS (1)
  - Sinus disorder [Unknown]
